FAERS Safety Report 4986922-1 (Version None)
Quarter: 2006Q2

REPORT INFORMATION
  Report Type: 
  Country: None (occurrence: None)
  Receive Date: 20060501
  Receipt Date: 20060421
  Transmission Date: 20061013
  Serious: Yes (Other)
  Sender: FDA-Public Use
  Company Number: PHRM2006FR01413

PATIENT
  Age: 57 Year
  Sex: Male

DRUGS (2)
  1. COTAREG [Suspect]
     Indication: HYPERTENSION
     Dosage: 1 DF, QD
     Route: 048
     Dates: start: 19960101
  2. COTAREG [Suspect]
     Dosage: 0.5 DF, QD
     Route: 048
     Dates: start: 20060201

REACTIONS (4)
  - BLOOD CHROMOGRANIN A INCREASED [None]
  - EXTRAOCULAR MUSCLE PARESIS [None]
  - FATIGUE [None]
  - HEADACHE [None]
